FAERS Safety Report 21673272 (Version 2)
Quarter: 2022Q4

REPORT INFORMATION
  Report Type: Report from Study
  Country: IT (occurrence: IT)
  Receive Date: 20221202
  Receipt Date: 20221213
  Transmission Date: 20230113
  Serious: Yes (Death, Other)
  Sender: FDA-Public Use
  Company Number: IT-002147023-NVSC2022IT101556

PATIENT
  Sex: Male
  Weight: 70 kg

DRUGS (4)
  1. RYDAPT [Suspect]
     Active Substance: MIDOSTAURIN
     Indication: Systemic mastocytosis
     Dosage: 100, BID
     Route: 048
     Dates: start: 20220314, end: 20220412
  2. RYDAPT [Suspect]
     Active Substance: MIDOSTAURIN
     Dosage: 25, BID
     Route: 048
     Dates: start: 20220419, end: 20220516
  3. RYDAPT [Suspect]
     Active Substance: MIDOSTAURIN
     Dosage: 50, BID
     Route: 048
     Dates: start: 20220517, end: 20220525
  4. RYDAPT [Suspect]
     Active Substance: MIDOSTAURIN
     Dosage: 25, BID
     Route: 048
     Dates: start: 20220526

REACTIONS (5)
  - Sepsis [Fatal]
  - Acute leukaemia [Fatal]
  - Thrombocytopenia [Not Recovered/Not Resolved]
  - Anaemia [Recovered/Resolved]
  - Anaemia [Recovered/Resolved]

NARRATIVE: CASE EVENT DATE: 20220328
